FAERS Safety Report 5132916-5 (Version None)
Quarter: 2006Q4

REPORT INFORMATION
  Report Type: 
  Country: None (occurrence: None)
  Receive Date: 20061023
  Receipt Date: 20061012
  Transmission Date: 20070319
  Serious: Yes (Other)
  Sender: FDA-Public Use
  Company Number: CN-JNJFOC-20061003320

PATIENT
  Sex: Male

DRUGS (2)
  1. TOPIRAMATE [Suspect]
     Dosage: QUARTER TABLET, INCREASED GRADUALLY
     Route: 048
  2. TOPIRAMATE [Suspect]
     Indication: EPILEPSY
     Dosage: MAINTENANCE DOSE (USING 25 MG TABLETS)
     Route: 048

REACTIONS (1)
  - CYANOSIS [None]
